FAERS Safety Report 8934627 (Version 2)
Quarter: 2016Q3

REPORT INFORMATION
  Report Type: Spontaneous
  Country: US (occurrence: US)
  Receive Date: 20121129
  Receipt Date: 20160830
  Transmission Date: 20161109
  Serious: Yes (Congenital Anomaly, Other)
  Sender: FDA-Public Use
  Company Number: US-ELI_LILLY_AND_COMPANY-US201211005931

PATIENT
  Age: 0 Day

DRUGS (2)
  1. PROZAC [Suspect]
     Active Substance: FLUOXETINE HYDROCHLORIDE
     Indication: DEPRESSION
     Dosage: 40 MG, UNKNOWN
     Route: 064
  2. PRILOSEC [Concomitant]
     Active Substance: OMEPRAZOLE MAGNESIUM
     Route: 064

REACTIONS (12)
  - Cardiac murmur [Unknown]
  - Hypoglycaemia [Unknown]
  - Autism [Unknown]
  - Seizure [Unknown]
  - Umbilical cord around neck [Unknown]
  - Respiratory failure [Unknown]
  - Heart disease congenital [Unknown]
  - Lethargy [Unknown]
  - Neonatal aspiration [Unknown]
  - Foetal exposure during pregnancy [Unknown]
  - Exposure during breast feeding [Unknown]
  - Affective disorder [Unknown]

NARRATIVE: CASE EVENT DATE: 20060602
